FAERS Safety Report 6911072-4 (Version None)
Quarter: 2010Q3

REPORT INFORMATION
  Report Type: 
  Country: None (occurrence: None)
  Receive Date: 20100806
  Receipt Date: 20100730
  Transmission Date: 20110219
  Serious: Yes (Other)
  Sender: FDA-Public Use
  Company Number: US-AMGEN-KDL425961

PATIENT
  Age: 87 Year
  Sex: Male
  Weight: 79.5 kg

DRUGS (8)
  1. PROCRIT [Suspect]
     Indication: RENAL FAILURE CHRONIC
     Dates: start: 20090624, end: 20100311
  2. ARANESP [Suspect]
     Indication: RENAL FAILURE CHRONIC
     Route: 058
     Dates: start: 20100603
  3. ACETAMINOPHEN [Concomitant]
  4. FINASTERIDE [Concomitant]
  5. HYDROCHLOROTHIAZIDE [Concomitant]
  6. LISINOPRIL [Concomitant]
  7. TERAZOSIN HCL [Concomitant]
  8. COLCHICINE [Concomitant]

REACTIONS (1)
  - APLASIA PURE RED CELL [None]
